FAERS Safety Report 4716104-X (Version None)
Quarter: 2005Q3

REPORT INFORMATION
  Report Type: 
  Country: None (occurrence: None)
  Receive Date: 20050718
  Receipt Date: 20050712
  Transmission Date: 20060218
  Serious: Yes (Hospitalization)
  Sender: FDA-Public Use
  Company Number: US-ABBOTT-05P-163-0305541-00

PATIENT
  Sex: Female
  Weight: 39.952 kg

DRUGS (8)
  1. HUMIRA [Suspect]
     Indication: ARTHRITIS
     Route: 058
     Dates: start: 20050501, end: 20050601
  2. LEVOTHYROXINE SODIUM [Concomitant]
     Indication: THYROID DISORDER
  3. PREDNISONE [Concomitant]
     Indication: DRUG USE FOR UNKNOWN INDICATION
  4. DILTIAZEM HYDROCHLORIDE [Concomitant]
     Indication: DRUG USE FOR UNKNOWN INDICATION
  5. GLUCOPHAGE [Concomitant]
     Indication: DIABETES MELLITUS
  6. CALCITONIN-SALMON [Concomitant]
     Indication: MINERAL SUPPLEMENTATION
  7. FOLTIX [Concomitant]
     Indication: DRUG USE FOR UNKNOWN INDICATION
  8. HYDROCODONE BITARTRATE [Concomitant]
     Indication: PAIN

REACTIONS (4)
  - DEHYDRATION [None]
  - EMPHYSEMA [None]
  - OEDEMA PERIPHERAL [None]
  - PNEUMONIA [None]
